FAERS Safety Report 20940351 (Version 1)
Quarter: 2022Q2

REPORT INFORMATION
  Report Type: Report from Study
  Country: US (occurrence: US)
  Receive Date: 20220609
  Receipt Date: 20220609
  Transmission Date: 20220720
  Serious: Yes (Life-Threatening, Hospitalization)
  Sender: FDA-Public Use
  Company Number: US-BIOCRYST-2022BCR00209

PATIENT

DRUGS (17)
  1. BEROTRALSTAT [Suspect]
     Active Substance: BEROTRALSTAT
     Indication: Hereditary angioedema
     Dosage: 110 MG, QD
     Route: 048
     Dates: start: 20210805, end: 2022
  2. CALCIUM\VITAMIN D [Concomitant]
     Active Substance: CALCIUM\VITAMIN D
  3. IRON [Concomitant]
     Active Substance: IRON
  4. CETIRIZINE [Concomitant]
     Active Substance: CETIRIZINE HYDROCHLORIDE
  5. FEXOFENADINE [Concomitant]
     Active Substance: FEXOFENADINE HYDROCHLORIDE
  6. ICATIBANT [Concomitant]
     Active Substance: ICATIBANT ACETATE
  7. MYCOPHENOLIC ACID [Concomitant]
     Active Substance: MYCOPHENOLIC ACID
  8. ZOFRAN [Concomitant]
     Active Substance: ONDANSETRON HYDROCHLORIDE
  9. PANTOPRAZOLE [Concomitant]
     Active Substance: PANTOPRAZOLE
  10. TACROLIMUS [Concomitant]
     Active Substance: TACROLIMUS
  11. CARVEDILOL [Concomitant]
     Active Substance: CARVEDILOL
  12. ELIQUIS [Concomitant]
     Active Substance: APIXABAN
  13. HYDRALAZINE [Concomitant]
     Active Substance: HYDRALAZINE HYDROCHLORIDE
  14. OXYCODONE [Concomitant]
     Active Substance: OXYCODONE
  15. HYDROXYCHLOROQUINE SULFATE [Concomitant]
     Active Substance: HYDROXYCHLOROQUINE SULFATE
  16. PREDNISONE [Concomitant]
     Active Substance: PREDNISONE
  17. TRAMADOL [Concomitant]
     Active Substance: TRAMADOL

REACTIONS (2)
  - Blood potassium increased [Not Recovered/Not Resolved]
  - Cardiac operation [Recovering/Resolving]

NARRATIVE: CASE EVENT DATE: 20220101
